FAERS Safety Report 6072903-6 (Version None)
Quarter: 2009Q1

REPORT INFORMATION
  Report Type: 
  Country: None (occurrence: None)
  Receive Date: 20090205
  Receipt Date: 20090130
  Transmission Date: 20090719
  Serious: Yes (Hospitalization)
  Sender: FDA-Public Use
  Company Number: 09P-229-0500665-00

PATIENT
  Sex: Female

DRUGS (1)
  1. SYNAGIS [Suspect]
     Dosage: (15 MG/KG) INJECTION
     Dates: start: 20081031

REACTIONS (1)
  - PNEUMONIA [None]
